FAERS Safety Report 24528162 (Version 1)
Quarter: 2024Q4

REPORT INFORMATION
  Report Type: Spontaneous
  Country: SY (occurrence: SY)
  Receive Date: 20241021
  Receipt Date: 20241021
  Transmission Date: 20250114
  Serious: Yes (Hospitalization)
  Sender: PRAXGEN PHARMACEUTICALS
  Company Number: SY-PRAXGEN-2024PPLIT00053

PATIENT
  Age: 43 Year
  Sex: Female

DRUGS (1)
  1. METHYLPREDNISOLONE [Suspect]
     Active Substance: METHYLPREDNISOLONE
     Indication: Multiple sclerosis
     Dosage: OVER 30-40 MIN
     Route: 042

REACTIONS (1)
  - Bradycardia [Recovered/Resolved]
